FAERS Safety Report 6642050 (Version 3)
Quarter: 2020Q3

REPORT INFORMATION
  Report Type: Report from Study
  Country: US (occurrence: US)
  Receive Date: 20080516
  Receipt Date: 20080916
  Transmission Date: 20201105
  Serious: Yes (Death, Hospitalization, Other)
  Sender: FDA-Public Use
  Company Number: US-WYE-H03939508

PATIENT
  Age: 66 Year
  Sex: Male
  Weight: 105.78 kg

DRUGS (1)
  1. TACROLIMUS. [Suspect]
     Active Substance: TACROLIMUS
     Indication: PROPHYLAXIS AGAINST TRANSPLANT REJECTION
     Dosage: DOSE UNKNOWN
     Route: 065
     Dates: start: 20040611, end: 20080409

REACTIONS (2)
  - Mediastinum neoplasm [Fatal]
  - Asthenia [Not Recovered/Not Resolved]

NARRATIVE: CASE EVENT DATE: 20080316
